FAERS Safety Report 5527737-5 (Version None)
Quarter: 2007Q4

REPORT INFORMATION
  Report Type: 
  Country: None (occurrence: None)
  Receive Date: 20071128
  Receipt Date: 20071119
  Transmission Date: 20080405
  Serious: Yes (Death, Hospitalization)
  Sender: FDA-Public Use
  Company Number: US-ELI_LILLY_AND_COMPANY-US200707002769

PATIENT
  Sex: Female

DRUGS (7)
  1. BYETTA [Suspect]
     Dosage: 10 UG, 2/D
     Route: 058
     Dates: start: 20050101, end: 20070530
  2. BYETTA [Suspect]
     Dosage: 10 UG, UNKNOWN
     Route: 058
     Dates: start: 20070601
  3. GLUCOVANCE [Concomitant]
     Dosage: UNK, DAILY (1/D)
     Route: 048
     Dates: start: 20020101
  4. OXYGEN [Concomitant]
     Dosage: 10 LITER, UNK
     Dates: start: 20020101
  5. PREDNISONE TAB [Concomitant]
     Dosage: 2 MEQ, QOD
     Route: 048
     Dates: start: 20060901
  6. CYTOXAN [Concomitant]
     Dosage: 75 MG, 3/D
     Route: 048
     Dates: start: 20070101
  7. HUMULIN /PRI/ [Concomitant]
     Dosage: UNK, AS NEEDED
     Dates: start: 20060701

REACTIONS (8)
  - ASTHENIA [None]
  - BLOOD GLUCOSE DECREASED [None]
  - BLOOD GLUCOSE FLUCTUATION [None]
  - DEATH [None]
  - DIARRHOEA [None]
  - HYPERHIDROSIS [None]
  - PYREXIA [None]
  - VOMITING [None]
